FAERS Safety Report 5358616-4 (Version None)
Quarter: 2007Q2

REPORT INFORMATION
  Report Type: 
  Country: None (occurrence: None)
  Receive Date: 20070615
  Receipt Date: 20070605
  Transmission Date: 20071010
  Serious: Yes (Hospitalization, Other)
  Sender: FDA-Public Use
  Company Number: US-NOVOPROD-264249

PATIENT
  Sex: Male
  Weight: 100 kg

DRUGS (7)
  1. BLINDED NO DRUG GIVEN [Suspect]
     Indication: TRAUMATIC HAEMORRHAGE
     Dosage: 3 DOSES
     Route: 042
     Dates: start: 20070512, end: 20070512
  2. NOVOSEVEN [Suspect]
     Indication: TRAUMATIC HAEMORRHAGE
     Dosage: 3 DOSES
     Route: 042
     Dates: start: 20070512, end: 20070512
  3. BLINDED PLACEBO POWDER FOR INJECTION [Suspect]
     Indication: TRAUMATIC HAEMORRHAGE
     Dosage: 3 DOSES
     Route: 042
     Dates: start: 20070512, end: 20070512
  4. BLINDED UNKNOWN [Suspect]
     Indication: TRAUMATIC HAEMORRHAGE
     Dosage: 3 DOSES
     Route: 042
     Dates: start: 20070512, end: 20070512
  5. HEPARIN [Concomitant]
     Indication: VENA CAVA THROMBOSIS
     Dosage: 2050 UNITS PER HOUR
     Route: 042
     Dates: start: 20070602
  6. HEPARIN [Concomitant]
     Dosage: 10000 U, SINGLE
     Route: 042
     Dates: start: 20070602, end: 20070602
  7. HEPARIN [Concomitant]
     Dosage: 2000 UNITS PER HOUR
     Dates: start: 20070602, end: 20070602

REACTIONS (2)
  - PULMONARY EMBOLISM [None]
  - VENA CAVA THROMBOSIS [None]
